FAERS Safety Report 9506466 (Version 3)
Quarter: 2014Q2

REPORT INFORMATION
  Report Type: Spontaneous
  Country: JP (occurrence: JP)
  Receive Date: 20130906
  Receipt Date: 20140530
  Transmission Date: 20141212
  Serious: Yes (Other)
  Sender: FDA-Public Use
  Company Number: PHHY2013JP097988

PATIENT
  Age: 85 Year
  Sex: Male

DRUGS (1)
  1. AFINITOR [Suspect]
     Indication: PANCREATIC NEUROENDOCRINE TUMOUR METASTATIC
     Dosage: 5 MG, DAILY
     Route: 048
     Dates: start: 20121112, end: 20130406

REACTIONS (1)
  - Cholecystitis [Recovered/Resolved]
